FAERS Safety Report 19686943 (Version 2)
Quarter: 2021Q3

REPORT INFORMATION
  Report Type: Spontaneous
  Country: PT (occurrence: PT)
  Receive Date: 20210811
  Receipt Date: 20210823
  Transmission Date: 20211014
  Serious: Yes (Other)
  Sender: FDA-Public Use
  Company Number: PT-MYLANLABS-2021M1049276

PATIENT
  Age: 78 Year
  Sex: Male

DRUGS (7)
  1. ATARAX [Concomitant]
     Active Substance: HYDROXYZINE HYDROCHLORIDE
     Dosage: 25 MILLIGRAM, QD
     Route: 048
     Dates: start: 20200204
  2. DUAKLIR GENUAIR [Concomitant]
     Active Substance: ACLIDINIUM BROMIDE\FORMOTEROL FUMARATE
     Dosage: 2 DOSAGE FORM, QD
     Route: 055
     Dates: start: 20200312
  3. COMIRNATY [Suspect]
     Active Substance: TOZINAMERAN
     Indication: COVID-19 IMMUNISATION
     Dosage: 0.6 MILLILITER, 2?DOSE SCHEME WITH AN INTERVAL OF AT LEAST 21 DAYS BETWEEN DOSES
     Route: 030
     Dates: start: 20210129
  4. LEVOFLOXACIN. [Suspect]
     Active Substance: LEVOFLOXACIN
     Indication: URINARY TRACT INFECTION
     Dosage: 500 MILLIGRAM, QOD
     Route: 048
     Dates: start: 20210126, end: 20210201
  5. ACETYLSALICYLIC ACID [Concomitant]
     Active Substance: ASPIRIN
     Dosage: 150 MILLIGRAM, QD
     Route: 048
     Dates: start: 20200312
  6. ELIQUIS [Concomitant]
     Active Substance: APIXABAN
     Dosage: 5 MILLIGRAM, QD
     Route: 048
     Dates: start: 20201222
  7. COMIRNATY [Suspect]
     Active Substance: TOZINAMERAN
     Dosage: 0.3 MILLILITER (1? DOSE: 29?01?2021)
     Route: 030
     Dates: start: 20210129

REACTIONS (3)
  - Rash macular [Recovering/Resolving]
  - Skin burning sensation [Recovering/Resolving]
  - Pruritus [Recovering/Resolving]

NARRATIVE: CASE EVENT DATE: 20210130
